FAERS Safety Report 21348912 (Version 1)
Quarter: 2022Q3

REPORT INFORMATION
  Report Type: Spontaneous
  Country: AT (occurrence: AT)
  Receive Date: 20220919
  Receipt Date: 20220919
  Transmission Date: 20221027
  Serious: Yes (Hospitalization)
  Sender: FDA-Public Use
  Company Number: None

PATIENT
  Age: 66 Year
  Sex: Female

DRUGS (1)
  1. IOPAMIDOL [Suspect]
     Active Substance: IOPAMIDOL
     Indication: Magnetic resonance imaging
     Dosage: ACCORDING TO THE TECHNICAL INFORMATION (SMPC) AND RECOMMENDATIONS FOR USE
     Dates: start: 20220805, end: 20220805

REACTIONS (4)
  - Off label use [Recovered/Resolved]
  - Swelling [Recovered/Resolved]
  - Pain [Recovered/Resolved]
  - Administration site extravasation [Recovered/Resolved]

NARRATIVE: CASE EVENT DATE: 20220805
